FAERS Safety Report 11571054 (Version 1)
Quarter: 2015Q3

REPORT INFORMATION
  Report Type: Spontaneous
  Country: US (occurrence: US)
  Receive Date: 20150916
  Receipt Date: 20150916
  Transmission Date: 20151125
  Serious: No
  Sender: FDA-Public Use
  Company Number: US-ELI_LILLY_AND_COMPANY-US200909004041

PATIENT
  Age: 71 Year
  Sex: Female

DRUGS (7)
  1. COUMADIN [Concomitant]
     Active Substance: WARFARIN SODIUM
  2. AMIODARONE [Concomitant]
     Active Substance: AMIODARONE
  3. LISINOPRIL. [Concomitant]
     Active Substance: LISINOPRIL
  4. LASIX [Concomitant]
     Active Substance: FUROSEMIDE
     Dosage: 80 MG, DAILY (1/D)
  5. POTASSIUM [Concomitant]
     Active Substance: POTASSIUM
  6. LUTEIN [Concomitant]
     Active Substance: LUTEIN
  7. FORTEO [Suspect]
     Active Substance: TERIPARATIDE
     Dosage: UNK, UNK
     Dates: start: 20080812

REACTIONS (19)
  - Thrombosis [Unknown]
  - Peripheral vascular disorder [Unknown]
  - Neuropathy peripheral [Unknown]
  - Rash [Unknown]
  - Laceration [Unknown]
  - Bowel movement irregularity [Recovered/Resolved]
  - Peripheral venous disease [Unknown]
  - Pain in extremity [Unknown]
  - Chemical injury [Unknown]
  - Pain [Unknown]
  - Injury [Unknown]
  - Adverse drug reaction [Unknown]
  - Fall [Unknown]
  - Contusion [Unknown]
  - Foot fracture [Unknown]
  - Surgery [Unknown]
  - Fall [Unknown]
  - Arterial disorder [Unknown]
  - Cardiac disorder [Recovered/Resolved]

NARRATIVE: CASE EVENT DATE: 2008
